FAERS Safety Report 7067774-5 (Version None)
Quarter: 2010Q4

REPORT INFORMATION
  Report Type: 
  Country: None (occurrence: None)
  Receive Date: 20101028
  Receipt Date: 20100430
  Transmission Date: 20110411
  Serious: Yes (Other)
  Sender: FDA-Public Use
  Company Number: A0845758A

PATIENT
  Age: 34 Year
  Sex: Female

DRUGS (2)
  1. SEREVENT [Suspect]
     Dosage: 50MCG UNKNOWN
     Route: 055
     Dates: start: 20080801
  2. ACETAMINOPHEN [Concomitant]

REACTIONS (2)
  - ASTHMA [None]
  - PRODUCT QUALITY ISSUE [None]
